FAERS Safety Report 25892251 (Version 1)
Quarter: 2025Q4

REPORT INFORMATION
  Report Type: Spontaneous
  Country: EU (occurrence: EU)
  Receive Date: 20251007
  Receipt Date: 20251007
  Transmission Date: 20260118
  Serious: Yes (Other)
  Sender: MYLAN
  Company Number: None

PATIENT
  Age: 39 Year
  Sex: Female
  Weight: 55 kg

DRUGS (2)
  1. KETOPROFEN [Suspect]
     Active Substance: KETOPROFEN
     Indication: Ankylosing spondylitis
     Dosage: 100 MILLIGRAM, QD (LP IN THE EVENING)
     Dates: start: 202508, end: 20250821
  2. IBUPROFEN [Suspect]
     Active Substance: IBUPROFEN
     Indication: Ankylosing spondylitis
     Dosage: 200 MILLIGRAM, BID (MORNING AND EVENING)
     Dates: start: 20250806, end: 20250821

REACTIONS (2)
  - Skin exfoliation [Recovered/Resolved]
  - Aphthous ulcer [Recovered/Resolved]

NARRATIVE: CASE EVENT DATE: 20250820
